FAERS Safety Report 5218313-2 (Version None)
Quarter: 2007Q1

REPORT INFORMATION
  Report Type: 
  Country: None (occurrence: None)
  Receive Date: 20070124
  Receipt Date: 20070112
  Transmission Date: 20070707
  Serious: Yes (Hospitalization, Other)
  Sender: FDA-Public Use
  Company Number: IT-PFIZER INC-2007003784

PATIENT
  Age: 76 Year
  Sex: Male

DRUGS (5)
  1. CELEBREX [Suspect]
     Indication: ARTHRALGIA
     Dosage: DAILY DOSE:200MG
     Route: 048
     Dates: start: 20060401, end: 20060528
  2. ASPIRIN [Suspect]
     Indication: ARTERIOSCLEROSIS CORONARY ARTERY
     Dosage: DAILY DOSE:100MG
     Route: 048
  3. OLMETEC [Concomitant]
     Dosage: DAILY DOSE:10MG
     Route: 048
  4. OMNIC [Concomitant]
     Dosage: DAILY DOSE:.4MG
     Route: 048
  5. FORTRADOL [Concomitant]
     Route: 048

REACTIONS (5)
  - ANAEMIA [None]
  - ANOREXIA [None]
  - GASTRITIS EROSIVE [None]
  - GASTROOESOPHAGEAL SPHINCTER INSUFFICIENCY [None]
  - WEIGHT DECREASED [None]
